FAERS Safety Report 5040000-4 (Version None)
Quarter: 2006Q2

REPORT INFORMATION
  Report Type: 
  Country: None (occurrence: None)
  Receive Date: 20060630
  Receipt Date: 20060622
  Transmission Date: 20061013
  Serious: Yes (Hospitalization)
  Sender: FDA-Public Use
  Company Number: DE-BRISTOL-MYERS SQUIBB COMPANY-13421706

PATIENT
  Age: 65 Year
  Sex: Female
  Weight: 85 kg

DRUGS (3)
  1. PACLITAXEL [Suspect]
     Indication: CERVIX CARCINOMA
     Route: 042
     Dates: start: 20060320, end: 20060320
  2. CARBOPLATIN [Suspect]
     Indication: CERVIX CARCINOMA
     Route: 042
     Dates: start: 20060320, end: 20060320
  3. RADIOTHERAPY [Concomitant]

REACTIONS (3)
  - CYSTITIS [None]
  - PAIN [None]
  - PYREXIA [None]
